FAERS Safety Report 13653557 (Version 2)
Quarter: 2017Q3

REPORT INFORMATION
  Report Type: Report from Study
  Country: US (occurrence: US)
  Receive Date: 20170614
  Receipt Date: 20170710
  Transmission Date: 20171127
  Serious: No
  Sender: FDA-Public Use
  Company Number: US-AMGEN-USASL2017088123

PATIENT
  Age: 42 Year
  Sex: Female

DRUGS (2)
  1. ENBREL [Suspect]
     Active Substance: ETANERCEPT
     Indication: RHEUMATOID ARTHRITIS
     Dosage: 50 MG, QWK
     Route: 065
     Dates: start: 201705, end: 2017
  2. ENBREL [Suspect]
     Active Substance: ETANERCEPT
     Dosage: 50 MG, QWK
     Route: 065
     Dates: start: 2017

REACTIONS (9)
  - Nasal congestion [Recovered/Resolved]
  - Fatigue [Unknown]
  - Injection site bruising [Unknown]
  - Headache [Unknown]
  - Epistaxis [Unknown]
  - Urticaria [Unknown]
  - Arthralgia [Not Recovered/Not Resolved]
  - Product storage error [Unknown]
  - Malaise [Unknown]

NARRATIVE: CASE EVENT DATE: 2017
